FAERS Safety Report 24594333 (Version 1)
Quarter: 2024Q4

REPORT INFORMATION
  Report Type: Report from Study
  Country: BE (occurrence: BE)
  Receive Date: 20241108
  Receipt Date: 20241108
  Transmission Date: 20250115
  Serious: Yes (Hospitalization, Other)
  Sender: GLAXOSMITHKLINE
  Company Number: None

PATIENT

DRUGS (19)
  1. EPOPROSTENOL SODIUM [Suspect]
     Active Substance: EPOPROSTENOL SODIUM
     Indication: Pulmonary arterial hypertension
     Dosage: UNK (2 NG/KG/ MIN)
     Route: 042
     Dates: start: 20211117, end: 20211118
  2. EPOPROSTENOL SODIUM [Suspect]
     Active Substance: EPOPROSTENOL SODIUM
     Dosage: UNK (3 NG/KG/ MIN)
     Route: 042
     Dates: start: 20211118, end: 20211119
  3. EPOPROSTENOL SODIUM [Suspect]
     Active Substance: EPOPROSTENOL SODIUM
     Dosage: UNK (4 NG/KG/ MIN)
     Route: 042
     Dates: start: 20211119, end: 20211120
  4. EPOPROSTENOL SODIUM [Suspect]
     Active Substance: EPOPROSTENOL SODIUM
     Dosage: UNK (5 NG/KG/ MIN)
     Route: 042
     Dates: start: 20211120, end: 20211121
  5. EPOPROSTENOL SODIUM [Suspect]
     Active Substance: EPOPROSTENOL SODIUM
     Dosage: UNK (6 NG/KG/ MIN)
     Route: 042
     Dates: start: 20211121, end: 20211122
  6. EPOPROSTENOL SODIUM [Suspect]
     Active Substance: EPOPROSTENOL SODIUM
     Dosage: UNK (7 NG/KG/ MIN)
     Route: 042
     Dates: start: 20211122, end: 20211124
  7. EPOPROSTENOL SODIUM [Suspect]
     Active Substance: EPOPROSTENOL SODIUM
     Dosage: UNK (8 NG/KG/ MIN)
     Route: 042
     Dates: start: 20211124, end: 20211201
  8. EPOPROSTENOL SODIUM [Suspect]
     Active Substance: EPOPROSTENOL SODIUM
     Dosage: UNK (9 NG/KG/ MIN)
     Route: 042
     Dates: start: 20211201, end: 20211227
  9. EPOPROSTENOL SODIUM [Suspect]
     Active Substance: EPOPROSTENOL SODIUM
     Dosage: UNK (10NG/KG/ MIN)
     Route: 042
     Dates: start: 20211227, end: 20220107
  10. EPOPROSTENOL SODIUM [Suspect]
     Active Substance: EPOPROSTENOL SODIUM
     Dosage: UNK (10.5 NG/KG/ MIN)
     Route: 042
     Dates: start: 20220107, end: 20220121
  11. EPOPROSTENOL SODIUM [Suspect]
     Active Substance: EPOPROSTENOL SODIUM
     Dosage: UNK (8.5 NG/KG/ MIN)
     Route: 042
     Dates: start: 20220121, end: 20220124
  12. EPOPROSTENOL SODIUM [Suspect]
     Active Substance: EPOPROSTENOL SODIUM
     Dosage: UNK (9.5 NG/KG/ MIN)
     Route: 042
     Dates: start: 20220124, end: 20220127
  13. EPOPROSTENOL SODIUM [Suspect]
     Active Substance: EPOPROSTENOL SODIUM
     Dosage: UNK (10 NG/KG/ MIN)
     Route: 042
     Dates: start: 20220127, end: 20220201
  14. EPOPROSTENOL SODIUM [Suspect]
     Active Substance: EPOPROSTENOL SODIUM
     Dosage: UNK (12.5NG/KG/ MIN)
     Route: 042
     Dates: start: 20220201
  15. INSULIN HUMAN [Concomitant]
     Active Substance: INSULIN HUMAN
     Indication: Type 2 diabetes mellitus
     Dosage: UNK
     Route: 058
  16. SILDENAFIL [Concomitant]
     Active Substance: SILDENAFIL
     Indication: Pulmonary arterial hypertension
     Dosage: 60 MG
     Route: 048
     Dates: start: 20210219
  17. ATORVASTATIN [Concomitant]
     Active Substance: ATORVASTATIN
     Indication: Hypercholesterolaemia
     Dosage: UNK
     Route: 048
  18. ASPIRIN [Concomitant]
     Active Substance: ASPIRIN
     Indication: Cardiomyopathy
     Dosage: UNK
     Route: 048
     Dates: start: 20140101
  19. PERINDOPRIL [Concomitant]
     Active Substance: PERINDOPRIL
     Indication: Hypertension
     Dosage: UNK
     Route: 048

REACTIONS (10)
  - Hospitalisation [Unknown]
  - Syncope [Not Recovered/Not Resolved]
  - Dyspnoea [Recovering/Resolving]
  - Headache [Unknown]
  - Back pain [Unknown]
  - Epistaxis [Recovered/Resolved]
  - Pain in jaw [Recovered/Resolved]
  - Erythema [Unknown]
  - Malaise [Unknown]
  - Flushing [Unknown]

NARRATIVE: CASE EVENT DATE: 20211209
